FAERS Safety Report 8617843-0 (Version None)
Quarter: 2012Q3

REPORT INFORMATION
  Report Type: 
  Country: None (occurrence: None)
  Receive Date: 20120824
  Receipt Date: 20120312
  Transmission Date: 20120928
  Serious: No
  Sender: FDA-Public Use
  Company Number: US-ASTRAZENECA-2012SE11576

PATIENT
  Age: 46 Year
  Sex: Female

DRUGS (2)
  1. NEXIUM [Suspect]
     Indication: HIATUS HERNIA
     Route: 048
  2. SYMBICORT [Suspect]
     Dosage: DOSE UNKNOWN
     Route: 055

REACTIONS (5)
  - DRUG DOSE OMISSION [None]
  - DYSPNOEA [None]
  - BURNING SENSATION [None]
  - OFF LABEL USE [None]
  - APHAGIA [None]
